FAERS Safety Report 23454005 (Version 4)
Quarter: 2025Q4

REPORT INFORMATION
  Report Type: Report from Study
  Country: CA (occurrence: CA)
  Receive Date: 20240130
  Receipt Date: 20251024
  Transmission Date: 20260117
  Serious: Yes (Other)
  Sender: TAKEDA
  Company Number: CA-TAKEDA-2024TUS007276

PATIENT
  Age: 40 Year
  Sex: Female

DRUGS (9)
  1. VEDOLIZUMAB [Suspect]
     Active Substance: VEDOLIZUMAB
     Indication: Crohn^s disease
     Dosage: 300 MILLIGRAM
  2. VEDOLIZUMAB [Suspect]
     Active Substance: VEDOLIZUMAB
     Dosage: 300 MILLIGRAM
  3. VEDOLIZUMAB [Suspect]
     Active Substance: VEDOLIZUMAB
     Dosage: 300 MILLIGRAM, Q6WEEKS
     Dates: start: 20230615
  4. VEDOLIZUMAB [Suspect]
     Active Substance: VEDOLIZUMAB
     Dosage: 300 MILLIGRAM, Q4WEEKS
     Dates: start: 20240207
  5. VEDOLIZUMAB [Suspect]
     Active Substance: VEDOLIZUMAB
     Dosage: 300 MILLIGRAM, Q4WEEKS
  6. VEDOLIZUMAB [Suspect]
     Active Substance: VEDOLIZUMAB
     Dosage: 300 MILLIGRAM, Q4WEEKS
  7. APIXABAN [Concomitant]
     Active Substance: APIXABAN
     Dosage: 5 MILLIGRAM
     Dates: start: 20220331, end: 20240207
  8. CITALOPRAM [Concomitant]
     Active Substance: CITALOPRAM
     Dosage: 20 MILLIGRAM
  9. SYNTHROID [Concomitant]
     Active Substance: LEVOTHYROXINE SODIUM
     Dosage: 0.5 MILLIGRAM

REACTIONS (3)
  - Crohn^s disease [Recovered/Resolved]
  - Off label use [Unknown]
  - Drug effect less than expected [Unknown]

NARRATIVE: CASE EVENT DATE: 20230615
